FAERS Safety Report 7113699-6 (Version None)
Quarter: 2010Q4

REPORT INFORMATION
  Report Type: 
  Country: None (occurrence: None)
  Receive Date: 20101119
  Receipt Date: 20101115
  Transmission Date: 20110411
  Serious: Yes (Life-Threatening, Other)
  Sender: FDA-Public Use
  Company Number: ES-ASTRAZENECA-2010SE54312

PATIENT
  Age: 31 Year
  Sex: Male

DRUGS (8)
  1. MEPIVACAINE HCL [Suspect]
     Indication: LOCAL ANAESTHESIA
     Route: 053
  2. BUPIVACAINE HCL [Suspect]
     Indication: LOCAL ANAESTHESIA
     Route: 053
  3. SEVOFLURANE [Suspect]
     Indication: MAINTENANCE OF ANAESTHESIA
  4. SERTRALINE HYDROCHLORIDE [Suspect]
     Indication: DEPRESSION
  5. PROPOFOL [Concomitant]
     Indication: INDUCTION OF ANAESTHESIA
  6. FENTANYL [Concomitant]
     Indication: INDUCTION OF ANAESTHESIA
  7. ROCURONIUM BROMIDE [Concomitant]
     Indication: INDUCTION OF ANAESTHESIA
  8. MIDAZOLAM [Concomitant]
     Indication: PREMEDICATION

REACTIONS (5)
  - CARDIAC ARREST [None]
  - CARDIOGENIC SHOCK [None]
  - PULMONARY OEDEMA [None]
  - VENTRICULAR ARRHYTHMIA [None]
  - VENTRICULAR FIBRILLATION [None]
